FAERS Safety Report 16359958 (Version 2)
Quarter: 2019Q2

REPORT INFORMATION
  Report Type: Spontaneous
  Country: US (occurrence: US)
  Receive Date: 20190528
  Receipt Date: 20190611
  Transmission Date: 20190711
  Serious: Yes (Death, Other)
  Sender: FDA-Public Use
  Company Number: US-ASTELLAS-2019US022048

PATIENT
  Age: 61 Year
  Sex: Male

DRUGS (6)
  1. CABAZITAXEL [Concomitant]
     Active Substance: CABAZITAXEL
     Indication: PRODUCT USED FOR UNKNOWN INDICATION
     Dosage: UNK UNK, UNKNOWN FREQ.
     Route: 065
  2. ELIGARD [Suspect]
     Active Substance: LEUPROLIDE ACETATE
     Indication: NEOPLASM PROGRESSION
     Dosage: 22.5 MG (EVERY 3 MONTHS)
     Route: 065
  3. ENZALUTAMIDE [Suspect]
     Active Substance: ENZALUTAMIDE
     Indication: PROSTATE CANCER METASTATIC
     Dosage: UNK UNK, UNKNOWN FREQ.
     Route: 065
  4. ORTERONEL [Concomitant]
     Active Substance: ORTERONEL
     Indication: PROSTATE CANCER METASTATIC
     Dosage: 300 MG, TWICE DAILY (28 DAYS EVERY MONTH)
     Route: 065
  5. DOCETAXEL. [Suspect]
     Active Substance: DOCETAXEL
     Indication: NEOPLASM PROGRESSION
     Dosage: UNK UNK, UNKNOWN FREQ.
     Route: 065
  6. ABIRATERONE. [Concomitant]
     Active Substance: ABIRATERONE ACETATE
     Indication: PRODUCT USED FOR UNKNOWN INDICATION
     Dosage: UNK UNK, UNKNOWN FREQ.
     Route: 065

REACTIONS (7)
  - Asthenia [Fatal]
  - Metastases to bone [Unknown]
  - Pleural effusion [Unknown]
  - Prostatic specific antigen increased [Unknown]
  - Failure to thrive [Fatal]
  - Prostate cancer [Unknown]
  - Dyspnoea [Recovered/Resolved]
